FAERS Safety Report 4563676-4 (Version None)
Quarter: 2005Q1

REPORT INFORMATION
  Report Type: 
  Country: None (occurrence: None)
  Receive Date: 20050125
  Receipt Date: 20040908
  Transmission Date: 20050727
  Serious: Yes (Hospitalization)
  Sender: FDA-Public Use
  Company Number: 2004061267

PATIENT
  Age: 34 Year
  Sex: Female

DRUGS (1)
  1. ZITHROMAX [Suspect]
     Indication: PELVIC INFLAMMATORY DISEASE
     Dosage: 500 MG (1 IN 1 D), INTRAMUSCULAR
     Route: 030
     Dates: start: 20040829, end: 20040829

REACTIONS (9)
  - ABSCESS [None]
  - ERYTHEMA [None]
  - HYPOAESTHESIA [None]
  - INJECTION SITE ERYTHEMA [None]
  - INJECTION SITE INDURATION [None]
  - MEDICATION ERROR [None]
  - PAIN [None]
  - SWELLING [None]
  - TENDERNESS [None]
